FAERS Safety Report 8251443-X (Version None)
Quarter: 2012Q1

REPORT INFORMATION
  Report Type: 
  Country: None (occurrence: None)
  Receive Date: 20120321
  Receipt Date: 20110906
  Transmission Date: 20120608
  Serious: Yes (Other)
  Sender: FDA-Public Use
  Company Number: 2010027221

PATIENT
  Sex: Female

DRUGS (5)
  1. PRE-NATAL VITAMINS (PRENATAAL VITAMINS) [Concomitant]
  2. RHOPHYLAC [Suspect]
     Indication: RHESUS INCOMPATIBILITY
     Dosage: INTRAVENOUS
     Route: 042
     Dates: start: 20090808
  3. RHOPHYLAC [Suspect]
     Indication: RHESUS INCOMPATIBILITY
     Dosage: INTRAVENOUS
     Route: 042
  4. RHOPHYLAC [Suspect]
     Indication: RHESUS INCOMPATIBILITY
     Dosage: INTRAVENOUS
     Dates: start: 20090529
  5. RHOPHYLAC [Suspect]
     Indication: RHESUS INCOMPATIBILITY
     Dosage: INTRAVENOUS
     Route: 042

REACTIONS (2)
  - RHESUS ANTIBODIES [None]
  - DRUG INEFFECTIVE [None]
